FAERS Safety Report 9372834 (Version 2)
Quarter: 2013Q3

REPORT INFORMATION
  Report Type: Spontaneous
  Country: US (occurrence: CA)
  Receive Date: 20130610
  Receipt Date: 20130701
  Transmission Date: 20140515
  Serious: Yes (Hospitalization, Other)
  Sender: FDA-Public Use
  Company Number: 2013036260

PATIENT
  Age: 57 Year
  Sex: Female

DRUGS (5)
  1. PRIVIGEN (IMMUNE GLOBULIN INTRAVENOUS (HUMAN) 10% LIQUID) [Suspect]
     Indication: PYODERMA GANGRENOSUM
     Route: 042
     Dates: start: 20130411, end: 20130411
  2. PREDNISONE (PREDNISONE) [Concomitant]
  3. ALL OTHER THERAPEUTIC PRODUCTS [Concomitant]
  4. VORICONAZOLE [Concomitant]
  5. VANCOMYCIN [Concomitant]

REACTIONS (2)
  - Neutropenia [None]
  - Accidental overdose [None]
